FAERS Safety Report 4604783-7 (Version None)
Quarter: 2005Q2

REPORT INFORMATION
  Report Type: 
  Country: None (occurrence: None)
  Receive Date: 20050224
  Receipt Date: 20041209
  Transmission Date: 20051028
  Serious: No
  Sender: FDA-Public Use
  Company Number: SU-2004-002696

PATIENT
  Age: 48 Year
  Sex: Male
  Weight: 151.0478 kg

DRUGS (2)
  1. BENICAR [Suspect]
     Indication: HYPERTENSION
     Dosage: 20 MG QD PO
     Route: 048
     Dates: start: 20030303
  2. VIAGRA [Concomitant]

REACTIONS (1)
  - CHEST PAIN [None]
